FAERS Safety Report 8738939 (Version 2)
Quarter: 2012Q4

REPORT INFORMATION
  Report Type: 
  Country: US (occurrence: US)
  Receive Date: 20120823
  Receipt Date: 20120925
  Transmission Date: 20130627
  Serious: Yes (Other)
  Sender: FDA-Public Use
  Company Number: US-BAYER-2012-085619

PATIENT
  Age: 51 Year
  Sex: Male
  Weight: 102 kg

DRUGS (22)
  1. TRASYLOL [Suspect]
     Indication: HEART TRANSPLANT
     Dosage: 1 ml, test dose
     Route: 042
     Dates: start: 20060913, end: 20060913
  2. TRASYLOL [Suspect]
     Indication: HEART TRANSPLANT
     Dosage: 2x 10 KIU
     Route: 042
     Dates: start: 20060913, end: 20060913
  3. TRASYLOL [Suspect]
     Indication: HEART TRANSPLANT
     Dosage: 50 ml/hr
     Route: 042
     Dates: start: 20060913, end: 20060913
  4. ACETYLSALICYLIC ACID (} 100 MG) [Concomitant]
  5. PLASMA, FRESH FROZEN [Concomitant]
     Dosage: 5 u, UNK
  6. POTASSIUM [Concomitant]
  7. NEXIUM [Concomitant]
  8. ISOFLURANE [Concomitant]
     Dosage: UNK
     Dates: start: 20060913
  9. FENTANYL [Concomitant]
     Dosage: UNK
     Dates: start: 20060913
  10. MIDAZOLAM [Concomitant]
     Dosage: UNK
     Dates: start: 20060913
  11. PANCURONIUM [Concomitant]
     Dosage: UNK
     Dates: start: 20060913
  12. HEPARIN [Concomitant]
  13. VITAMIN K [Concomitant]
  14. PHENYLEPHRINE [Concomitant]
     Dosage: UNK
     Dates: start: 20060913
  15. CEFUROXIME [Concomitant]
     Dosage: 1.6 g, UNK
     Dates: start: 20060913
  16. DOBUTAMINE [Concomitant]
     Dosage: UNK
     Dates: start: 20060913
  17. INSULIN [Concomitant]
     Dosage: UNK
     Dates: start: 20060913
  18. SOLUMEDROL [Concomitant]
     Dosage: UNK
     Dates: start: 20060913
  19. LIDOCAINE [Concomitant]
     Dosage: UNK
     Dates: start: 20060913
  20. VASOPRESSIN [Concomitant]
     Dosage: UNK
     Dates: start: 20060913
  21. LASIX [Concomitant]
     Dosage: UNK
     Dates: start: 20060913
  22. EPINEPHRINE [Concomitant]
     Dosage: UNK
     Dates: start: 20060913

REACTIONS (2)
  - Pleural effusion [None]
  - Renal failure acute [None]
